FAERS Safety Report 18795587 (Version 20)
Quarter: 2024Q4

REPORT INFORMATION
  Report Type: Spontaneous
  Country: CA (occurrence: CA)
  Receive Date: 20210127
  Receipt Date: 20241225
  Transmission Date: 20250114
  Serious: Yes (Hospitalization, Other)
  Sender: GLAXOSMITHKLINE
  Company Number: CA-GLAXOSMITHKLINE-CA2021AMR013313

PATIENT

DRUGS (117)
  1. ALBUTEROL [Suspect]
     Active Substance: ALBUTEROL
     Indication: Product used for unknown indication
     Dosage: 100 UG 1EVRY 4 HRS
     Route: 055
  2. ALBUTEROL [Suspect]
     Active Substance: ALBUTEROL
     Dosage: 2 DF
     Route: 055
  3. ALBUTEROL [Suspect]
     Active Substance: ALBUTEROL
     Dosage: UNK UNK,(AS REQUIRED)
  4. ALBUTEROL [Suspect]
     Active Substance: ALBUTEROL
     Dosage: 1 DF QID
     Route: 055
  5. ALBUTEROL [Suspect]
     Active Substance: ALBUTEROL
     Dosage: 100 UG
  6. ALBUTEROL [Suspect]
     Active Substance: ALBUTEROL
     Dosage: 150 MG
     Route: 045
  7. BISACODYL [Suspect]
     Active Substance: BISACODYL
     Indication: Product used for unknown indication
     Dosage: 5 MG, QD (1 EVERY 1 DAYS)
     Route: 048
  8. KETOROLAC TROMETHAMINE [Suspect]
     Active Substance: KETOROLAC TROMETHAMINE
     Indication: Pain
     Dosage: 20 MG, QID
     Route: 048
  9. LORAZEPAM [Suspect]
     Active Substance: LORAZEPAM
     Indication: Seizure
     Dosage: 0.5 MG (AS REQUIRED)
     Route: 060
  10. LORAZEPAM [Suspect]
     Active Substance: LORAZEPAM
     Indication: Pain management
     Dosage: 2.0 MG, (AS REQUIRED)
     Route: 060
  11. LORAZEPAM [Suspect]
     Active Substance: LORAZEPAM
     Indication: Muscle spasms
  12. LORAZEPAM [Suspect]
     Active Substance: LORAZEPAM
     Indication: Child abuse
  13. MONTELUKAST [Suspect]
     Active Substance: MONTELUKAST SODIUM
     Indication: Child abuse
     Dosage: 10 MG, QD
     Route: 048
  14. RANITIDINE [Suspect]
     Active Substance: RANITIDINE
     Indication: Child abuse
     Dosage: 150 MG, QD
     Route: 048
  15. FLUTICASONE PROPIONATE [Suspect]
     Active Substance: FLUTICASONE PROPIONATE
     Indication: Product used for unknown indication
     Dosage: UNK, QD
     Route: 055
  16. METHADONE [Suspect]
     Active Substance: METHADONE HYDROCHLORIDE
     Indication: Child abuse
     Dosage: 2 MG, TID
     Route: 048
  17. METHADONE [Suspect]
     Active Substance: METHADONE HYDROCHLORIDE
     Indication: Back pain
  18. OMEGA 3 [Suspect]
     Active Substance: CAPSAICIN
     Indication: Child abuse
     Dosage: 200 MG, QD
     Route: 048
  19. OMEGA 3 [Suspect]
     Active Substance: CAPSAICIN
     Dosage: 400 MG, QD
     Route: 048
  20. FLUTICASONE FUROATE [Suspect]
     Active Substance: FLUTICASONE FUROATE
     Indication: Child abuse
     Dosage: 2 DF
     Route: 055
  21. FLUTICASONE FUROATE [Suspect]
     Active Substance: FLUTICASONE FUROATE
     Dosage: 1 DF, QD
     Route: 055
  22. KETOROLAC [Suspect]
     Active Substance: KETOROLAC TROMETHAMINE
     Indication: Pain
     Dosage: 80 MG, QD
     Route: 048
  23. KETOROLAC [Suspect]
     Active Substance: KETOROLAC TROMETHAMINE
     Dosage: 20 MG, QID (1 EVERY 6 HOURS)
  24. ASCORBIC ACID [Suspect]
     Active Substance: ASCORBIC ACID
     Indication: Child abuse
     Dosage: 1500 MG, QD (1 EVERY 1 DAYS)
     Route: 048
  25. CHOLECALCIFEROL [Suspect]
     Active Substance: CHOLECALCIFEROL
     Indication: Vitamin supplementation
     Dosage: 200 IU, QD
     Route: 048
  26. CHOLECALCIFEROL [Suspect]
     Active Substance: CHOLECALCIFEROL
     Indication: Child abuse
     Dosage: 2000 IU, QD
     Route: 048
  27. PANTOPRAZOLE [Suspect]
     Active Substance: PANTOPRAZOLE
     Indication: Child abuse
     Dosage: 40 MG, QD
     Route: 048
  28. ARIPIPRAZOLE [Suspect]
     Active Substance: ARIPIPRAZOLE
     Indication: Child abuse
     Dosage: 2 MG, TID,1 EVERY 8 HOURS
     Route: 048
  29. ARIPIPRAZOLE [Suspect]
     Active Substance: ARIPIPRAZOLE
     Dosage: 2 MG, QD
     Route: 048
  30. BACLOFEN [Suspect]
     Active Substance: BACLOFEN
     Indication: Child abuse
     Dosage: 20 MG, TID,1 EVERY 8 HOURS 3 EVERY 1 DAYS
     Route: 048
  31. CELECOXIB [Suspect]
     Active Substance: CELECOXIB
     Indication: Pain management
     Dosage: 100 MG, BID
     Route: 048
  32. CELECOXIB [Suspect]
     Active Substance: CELECOXIB
     Indication: Child abuse
  33. CLOBAZAM [Suspect]
     Active Substance: CLOBAZAM
     Indication: Child abuse
     Dosage: 20 MG, BID
     Route: 048
  34. CLOBAZAM [Suspect]
     Active Substance: CLOBAZAM
     Indication: Back pain
  35. CLONIDINE [Suspect]
     Active Substance: CLONIDINE
     Indication: Child abuse
     Dosage: 0.1 MG, QD
     Route: 048
  36. CLONIDINE [Suspect]
     Active Substance: CLONIDINE
     Dosage: 0.05 MG, QD
     Route: 048
  37. CLONIDINE [Suspect]
     Active Substance: CLONIDINE
     Dosage: 0.5 MG, QD
     Route: 048
  38. CLONIDINE [Suspect]
     Active Substance: CLONIDINE
     Dosage: 01 MG
  39. DIMENHYDRINATE [Suspect]
     Active Substance: DIMENHYDRINATE
     Indication: Constipation
     Dosage: 25 MG, QD
     Route: 048
  40. DIMENHYDRINATE [Suspect]
     Active Substance: DIMENHYDRINATE
     Indication: Child abuse
     Dosage: 12.5 MG, QID
     Route: 048
  41. DIMENHYDRINATE [Suspect]
     Active Substance: DIMENHYDRINATE
     Indication: Pruritus
     Dosage: 25 MG
     Route: 048
  42. DIMENHYDRINATE [Suspect]
     Active Substance: DIMENHYDRINATE
     Indication: Constipation
     Dosage: 12.5 MG
     Route: 048
  43. DIMENHYDRINATE [Suspect]
     Active Substance: DIMENHYDRINATE
     Indication: Pruritus
     Dosage: 20 MG, QD
     Route: 048
  44. DIMENHYDRINATE [Suspect]
     Active Substance: DIMENHYDRINATE
     Dosage: 25 MG, QD
     Route: 048
  45. DIMENHYDRINATE [Suspect]
     Active Substance: DIMENHYDRINATE
     Dosage: 12.5 MG, QID
  46. DIMENHYDRINATE [Suspect]
     Active Substance: DIMENHYDRINATE
     Dosage: 12.5 MG, QID,  (1 EVERY 6 HOURS)
  47. FISH OIL [Suspect]
     Active Substance: FISH OIL
     Indication: Child abuse
     Dosage: 200 MG, QD
     Route: 048
  48. FISH OIL [Suspect]
     Active Substance: FISH OIL
     Dosage: 400 MG, QD
     Route: 048
  49. FLUOXETINE [Suspect]
     Active Substance: FLUOXETINE HYDROCHLORIDE
     Indication: Child abuse
     Dosage: 20 MG, QD
     Route: 048
  50. FLUTICASONE [Suspect]
     Active Substance: FLUTICASONE
     Indication: Child abuse
     Dosage: 250 UG, QD
     Route: 045
  51. FLUTICASONE [Suspect]
     Active Substance: FLUTICASONE
     Dosage: 2 DF, QD
     Route: 045
  52. FLUTICASONE [Suspect]
     Active Substance: FLUTICASONE
     Dosage: 2 DF, QD
     Route: 055
  53. GABAPENTIN [Suspect]
     Active Substance: GABAPENTIN
     Indication: Pain management
     Dosage: 600 MG, TID
     Route: 048
  54. GABAPENTIN [Suspect]
     Active Substance: GABAPENTIN
     Indication: Child abuse
     Dosage: 600 MG, BID
     Route: 048
  55. HYDROMORPHONE [Suspect]
     Active Substance: HYDROMORPHONE
     Indication: Pain management
     Dosage: 0.5 MG (AS REQUIRED)
     Route: 060
  56. HYDROMORPHONE [Suspect]
     Active Substance: HYDROMORPHONE
     Indication: Child abuse
  57. LEUPROLIDE ACETATE [Suspect]
     Active Substance: LEUPROLIDE ACETATE
     Indication: Child abuse
     Dosage: 7.5 MG, MO (1 EVERY 1 MONTH)
     Route: 030
  58. MELATONIN [Suspect]
     Active Substance: MELATONIN
     Indication: Sleep deficit
     Dosage: 10 MG, QD
     Route: 048
  59. MELATONIN [Suspect]
     Active Substance: MELATONIN
     Indication: Child abuse
  60. MELATONIN [Suspect]
     Active Substance: MELATONIN
     Indication: Sleep disorder
  61. METHOCARBAMOL [Suspect]
     Active Substance: METHOCARBAMOL
     Indication: Child abuse
     Dosage: 2 DF, QD
     Route: 048
  62. METHOCARBAMOL [Suspect]
     Active Substance: METHOCARBAMOL
     Dosage: 400 MG, BID
     Route: 048
  63. PHENOBARBITAL [Suspect]
     Active Substance: PHENOBARBITAL
     Indication: Child abuse
     Dosage: 30 MG, BID
     Route: 048
  64. POLYETHYLENE GLYCOLS [Suspect]
     Active Substance: POLYETHYLENE GLYCOLS
     Indication: Product used for unknown indication
     Dosage: 30 MG, BID
     Route: 048
  65. FLUOXETINE [Suspect]
     Active Substance: FLUOXETINE HYDROCHLORIDE
     Indication: Product used for unknown indication
     Dosage: 20 MG, QD
     Route: 048
  66. HYDROXYCHLOROQUINE [Suspect]
     Active Substance: HYDROXYCHLOROQUINE
     Indication: Child abuse
     Dosage: 400 MG, QD
     Route: 048
  67. POLYETHYLENE GLYCOL 3350 [Suspect]
     Active Substance: POLYETHYLENE GLYCOL 3350
     Indication: Child abuse
     Dosage: 30 MG, BID
     Route: 048
  68. ACETAMINOPHEN\METHOCARBAMOL [Suspect]
     Active Substance: ACETAMINOPHEN\METHOCARBAMOL
     Indication: Back pain
     Dosage: 400 MG, BID
     Route: 048
  69. ACETAMINOPHEN\METHOCARBAMOL [Suspect]
     Active Substance: ACETAMINOPHEN\METHOCARBAMOL
     Indication: Child abuse
  70. ROBAXISAL [Suspect]
     Active Substance: ASPIRIN\METHOCARBAMOL
     Indication: Product used for unknown indication
     Dosage: 400 MG, BID
     Route: 048
  71. ROBAXISAL [Suspect]
     Active Substance: ASPIRIN\METHOCARBAMOL
     Dosage: 500 MG, BID
     Route: 048
  72. VITAMIN C [Suspect]
     Active Substance: ASCORBIC ACID
     Indication: Product used for unknown indication
     Dosage: 1500 MG, QD (1 EVERY 1 DAYS)
     Route: 048
  73. HYDROXYCHLOROQUINE SULFATE [Suspect]
     Active Substance: HYDROXYCHLOROQUINE SULFATE
     Indication: Child abuse
     Dosage: 400 MG, QD
     Route: 048
  74. LEUPROLIDE ACETATE [Suspect]
     Active Substance: LEUPROLIDE ACETATE
     Indication: Product used for unknown indication
     Dosage: 7.5 MG, QD
     Route: 030
  75. LEUPROLIDE ACETATE [Suspect]
     Active Substance: LEUPROLIDE ACETATE
     Dosage: 7.5 MG, MO (MONTHLY)
     Route: 030
  76. ROBAXACET [Suspect]
     Active Substance: ACETAMINOPHEN\METHOCARBAMOL
     Indication: Back pain
     Dosage: 900 MG, QD
     Route: 048
  77. FLUOXETINE HYDROCHLORIDE [Suspect]
     Active Substance: FLUOXETINE HYDROCHLORIDE
     Indication: Product used for unknown indication
     Dosage: 20 MG, QD
     Route: 048
  78. HYDROMORPHONE HYDROCHLORIDE [Suspect]
     Active Substance: HYDROMORPHONE HYDROCHLORIDE
     Indication: Pain management
     Dosage: 0.5 MG (AS REQUIRED)
     Route: 060
  79. METHOCARBAMOL [Suspect]
     Active Substance: METHOCARBAMOL
     Indication: Back pain
     Dosage: UNK, BID, 2 EVERY 1 DAYS
     Route: 048
  80. METHOCARBAMOL [Suspect]
     Active Substance: METHOCARBAMOL
     Indication: Child abuse
     Dosage: 400 MG, QD
     Route: 065
  81. ACETAMINOPHEN\METHOCARBAMOL [Suspect]
     Active Substance: ACETAMINOPHEN\METHOCARBAMOL
     Indication: Product used for unknown indication
     Dosage: UNK UNK, BID
     Route: 048
  82. ELECTROLYTES NOS\POLYETHYLENE GLYCOLS [Suspect]
     Active Substance: ELECTROLYTES NOS\POLYETHYLENE GLYCOLS
     Indication: Product used for unknown indication
     Dosage: 30 MG, BID, 2 EVERY 1 DAY
     Route: 048
  83. ELIGARD [Suspect]
     Active Substance: LEUPROLIDE ACETATE
     Indication: Precocious puberty
     Dosage: 7.5 MG, MO (1 EVERY 1 MONTH)
     Route: 030
  84. ELIGARD [Suspect]
     Active Substance: LEUPROLIDE ACETATE
     Dosage: 7.5 MG
     Route: 058
  85. VITAMIN D3 [Suspect]
     Active Substance: CHOLECALCIFEROL
     Indication: Product used for unknown indication
     Dosage: 1000 IU
  86. METHADONE [Suspect]
     Active Substance: METHADONE HYDROCHLORIDE
     Indication: Child abuse
     Dosage: 2 MG, TID
     Route: 048
  87. METHADONE [Suspect]
     Active Substance: METHADONE HYDROCHLORIDE
     Indication: Back pain
     Dosage: 0.375 MG, QD
     Route: 048
  88. ALBUTEROL SULFATE [Suspect]
     Active Substance: ALBUTEROL SULFATE
     Indication: Child abuse
     Dosage: 1 DF, QID
     Route: 055
  89. ALBUTEROL SULFATE [Suspect]
     Active Substance: ALBUTEROL SULFATE
     Dosage: 100 UG,  1 EVERY 4 HOURS
     Route: 055
  90. ALBUTEROL SULFATE [Suspect]
     Active Substance: ALBUTEROL SULFATE
     Dosage: 2 DF
     Route: 055
  91. ALBUTEROL SULFATE [Suspect]
     Active Substance: ALBUTEROL SULFATE
     Dosage: 1 DF EVERY 4 HOURS
     Route: 055
  92. MONTELUKAST [Suspect]
     Active Substance: MONTELUKAST SODIUM
     Indication: Child abuse
     Dosage: 10 MG, QD
     Route: 048
  93. MONTELUKAST [Suspect]
     Active Substance: MONTELUKAST SODIUM
     Dosage: 10 MG, QD
     Route: 048
  94. DIPHENHYDRAMINE HYDROCHLORIDE [Suspect]
     Active Substance: DIPHENHYDRAMINE HYDROCHLORIDE
     Indication: Pruritus
     Dosage: 12.5 MG, QID, 1 EVERY 6 HOURS
     Route: 048
  95. DIPHENHYDRAMINE HYDROCHLORIDE [Suspect]
     Active Substance: DIPHENHYDRAMINE HYDROCHLORIDE
     Indication: Child abuse
     Dosage: 50 MG, QD
     Route: 048
  96. ROBAXISAL [Suspect]
     Active Substance: ASPIRIN\METHOCARBAMOL
     Indication: Child abuse
     Dosage: 400 MG, BID
     Route: 048
  97. ROBAXISAL [Suspect]
     Active Substance: ASPIRIN\METHOCARBAMOL
     Dosage: 500 MG, BID
     Route: 048
  98. DOCONEXENT [Suspect]
     Active Substance: DOCONEXENT
     Indication: Product used for unknown indication
     Dosage: UNK
  99. KETOROLAC [Suspect]
     Active Substance: KETOROLAC TROMETHAMINE
     Indication: Pain
     Dosage: 20 MG, 1EVERY 6 HOURS
     Route: 048
  100. KETOROLAC [Suspect]
     Active Substance: KETOROLAC TROMETHAMINE
     Dosage: UNK
  101. KETOROLAC [Suspect]
     Active Substance: KETOROLAC TROMETHAMINE
     Dosage: 80 MG, QD
     Route: 048
  102. ROBAXACET [Suspect]
     Active Substance: ACETAMINOPHEN\METHOCARBAMOL
     Indication: Back pain
     Dosage: 900 MG, QD
     Route: 048
  103. ROBAXACET [Suspect]
     Active Substance: ACETAMINOPHEN\METHOCARBAMOL
     Dosage: 400 MG, BID
     Route: 048
  104. ALBUTEROL [Suspect]
     Active Substance: ALBUTEROL
     Indication: Product used for unknown indication
     Dosage: 150 MG, 1 EVERY 4 HOURS
     Route: 045
  105. ALBUTEROL [Suspect]
     Active Substance: ALBUTEROL
     Dosage: 600 UG, QD
  106. ALBUTEROL [Suspect]
     Active Substance: ALBUTEROL
     Dosage: 100 UG
  107. PANTOPRAZOLE SODIUM [Suspect]
     Active Substance: PANTOPRAZOLE SODIUM
     Indication: Product used for unknown indication
     Dosage: 40 MG, QD
     Route: 048
  108. POLYETHYLENE GLYCOLS [Suspect]
     Active Substance: POLYETHYLENE GLYCOLS
     Indication: Product used for unknown indication
     Dosage: 30 MG, BID
     Route: 048
  109. RANITIDINE HYDROCHLORIDE [Suspect]
     Active Substance: RANITIDINE HYDROCHLORIDE
     Indication: Product used for unknown indication
     Dosage: 150 MG, QD
     Route: 048
  110. TYLENOL [Suspect]
     Active Substance: ACETAMINOPHEN
     Indication: Back pain
     Dosage: 400 MG, BID, WITH EXTRA STRENGTH
  111. ARIPIPRAZOLE [Suspect]
     Active Substance: ARIPIPRAZOLE
     Indication: Product used for unknown indication
     Dosage: 2 MG, 1D
     Route: 048
  112. UNSPECIFIED INGREDIENT [Suspect]
     Active Substance: UNSPECIFIED INGREDIENT
     Indication: Product used for unknown indication
     Dosage: 400 MG, QD
     Route: 048
  113. VITAMIN D3 [Suspect]
     Active Substance: CHOLECALCIFEROL
     Indication: Vitamin supplementation
     Dosage: 2000 IU, QD
     Route: 048
  114. VITAMIN C [Suspect]
     Active Substance: ASCORBIC ACID
     Indication: Product used for unknown indication
     Dosage: 1500 MG, QD
     Route: 048
  115. CHOLECALCIFEROL [Suspect]
     Active Substance: CHOLECALCIFEROL
     Indication: Product used for unknown indication
     Dosage: UNK
     Route: 065
  116. POLYETHYLENE GLYCOL\POTASSIUM CHLORIDE\SODIUM BICARBONATE [Concomitant]
     Active Substance: POLYETHYLENE GLYCOL\POTASSIUM CHLORIDE\SODIUM BICARBONATE
     Indication: Product used for unknown indication
     Dosage: 30 MG, BID
     Route: 065
  117. POLYETHYLENE GLYCOL 3350\POTASSIUM CHLORIDE\SODIUM BICARBONATE\SODIUM [Concomitant]
     Active Substance: POLYETHYLENE GLYCOL 3350\POTASSIUM CHLORIDE\SODIUM BICARBONATE\SODIUM CHLORIDE
     Indication: Product used for unknown indication
     Dosage: 30 MG, BID
     Route: 048

REACTIONS (16)
  - Drug abuse [Recovered/Resolved]
  - Drug dependence [Recovered/Resolved]
  - Respiratory depression [Recovered/Resolved]
  - Child abuse [Recovered/Resolved]
  - Victim of child abuse [Recovered/Resolved]
  - Epidural lipomatosis [Recovered/Resolved]
  - Juvenile idiopathic arthritis [Recovered/Resolved]
  - Obesity [Recovered/Resolved]
  - Tenderness [Recovered/Resolved]
  - Drug ineffective [Recovered/Resolved]
  - Off label use [Unknown]
  - Intentional product misuse [Unknown]
  - Product prescribing error [Unknown]
  - Product use issue [Unknown]
  - Inappropriate schedule of product administration [Unknown]
  - Product use in unapproved indication [Unknown]
